FAERS Safety Report 4381685-5 (Version None)
Quarter: 2004Q2

REPORT INFORMATION
  Report Type: 
  Country: None (occurrence: None)
  Receive Date: 20040615
  Receipt Date: 20040524
  Transmission Date: 20050107
  Serious: Yes (Other)
  Sender: FDA-Public Use
  Company Number: B0333930A

PATIENT
  Sex: Male

DRUGS (3)
  1. VINORELBINE TARTRATE [Suspect]
     Indication: LUNG NEOPLASM MALIGNANT
     Dosage: UNK/UNKNOWN/UNKNOWN
     Route: 065
  2. CISPLATIN [Suspect]
     Indication: LUNG NEOPLASM MALIGNANT
     Dosage: UNK/UNKNOWN/UNKNOWN
     Route: 065
  3. CORTICOSTEROID (FORMULATION UNKNOWN) (CORTICOSTEROID) [Suspect]
     Indication: LUNG NEOPLASM MALIGNANT
     Dosage: UNK/UNKNOWN/UNKNOWN
     Route: 065

REACTIONS (2)
  - PERITONEAL HAEMORRHAGE [None]
  - SPLENIC RUPTURE [None]
